FAERS Safety Report 8225910-9 (Version None)
Quarter: 2012Q1

REPORT INFORMATION
  Report Type: 
  Country: None (occurrence: None)
  Receive Date: 20120321
  Receipt Date: 20120308
  Transmission Date: 20120608
  Serious: No
  Sender: FDA-Public Use
  Company Number: KR-MYLANLABS-2012S1005363

PATIENT
  Age: 64 Year
  Sex: Female

DRUGS (3)
  1. OSELTAMIVIR [Interacting]
     Dosage: 150 MG/DAY FOR 5 DAYS
     Route: 065
  2. LEVOFLOXACIN [Concomitant]
     Route: 065
  3. WARFARIN SODIUM [Suspect]
     Indication: ATRIAL FIBRILLATION
     Route: 065

REACTIONS (2)
  - INTERNATIONAL NORMALISED RATIO INCREASED [None]
  - DRUG INTERACTION [None]
